FAERS Safety Report 9660935 (Version 1)
Quarter: 2013Q4

REPORT INFORMATION
  Report Type: Report from Study
  Country: CA (occurrence: CA)
  Receive Date: 20131031
  Receipt Date: 20131031
  Transmission Date: 20140711
  Serious: Yes (Hospitalization, Other)
  Sender: FDA-Public Use
  Company Number: CA-JNJFOC-20131016845

PATIENT
  Age: 29 Year
  Sex: Female
  Weight: 73.03 kg

DRUGS (3)
  1. REMICADE [Suspect]
     Indication: COLITIS ULCERATIVE
     Route: 042
     Dates: start: 201209, end: 201211
  2. PREDNISONE [Suspect]
     Indication: COLITIS ULCERATIVE
     Route: 065
  3. PREDNISONE [Suspect]
     Indication: COLITIS ULCERATIVE
     Route: 065

REACTIONS (8)
  - Subchorionic haematoma [Unknown]
  - Vaginal haemorrhage [Unknown]
  - Placenta praevia [Unknown]
  - Placenta accreta [Unknown]
  - Caesarean section [Recovered/Resolved]
  - Exposure during pregnancy [Recovered/Resolved]
  - Premature labour [Recovered/Resolved]
  - Colitis ulcerative [Unknown]
